FAERS Safety Report 7905506-6 (Version None)
Quarter: 2011Q4

REPORT INFORMATION
  Report Type: 
  Country: None (occurrence: None)
  Receive Date: 20111110
  Receipt Date: 20111031
  Transmission Date: 20120403
  Serious: No
  Sender: FDA-Public Use
  Company Number: US-BIOGENIDEC-2011BI017977

PATIENT
  Sex: Female

DRUGS (3)
  1. AVONEX [Concomitant]
     Indication: MULTIPLE SCLEROSIS
     Route: 030
  2. TYSABRI [Suspect]
     Indication: MULTIPLE SCLEROSIS
     Route: 042
     Dates: start: 20080423
  3. TYSABRI [Suspect]
     Route: 042
     Dates: start: 20050223

REACTIONS (6)
  - JOINT SWELLING [None]
  - PAIN IN EXTREMITY [None]
  - BALANCE DISORDER [None]
  - SCIATICA [None]
  - BACK PAIN [None]
  - MUSCLE SPASMS [None]
